FAERS Safety Report 9741171 (Version 1)
Quarter: 2013Q4

REPORT INFORMATION
  Report Type: Spontaneous
  Country: PH (occurrence: PH)
  Receive Date: 20131209
  Receipt Date: 20131209
  Transmission Date: 20140711
  Serious: Yes (Death, Other)
  Sender: FDA-Public Use
  Company Number: PH-009507513-1312PHL002247

PATIENT
  Age: 77 Year
  Sex: Female

DRUGS (1)
  1. COZAAR [Suspect]
     Dosage: 1 DF, QD
     Route: 048
     Dates: start: 20121122

REACTIONS (1)
  - Myocardial infarction [Fatal]
